FAERS Safety Report 4525490-5 (Version None)
Quarter: 2004Q4

REPORT INFORMATION
  Report Type: 
  Country: None (occurrence: None)
  Receive Date: 20041108
  Receipt Date: 20030616
  Transmission Date: 20050328
  Serious: Yes (Hospitalization, Other)
  Sender: FDA-Public Use
  Company Number: US-JNJFOC-20040900911

PATIENT
  Age: 15 Year
  Sex: Male

DRUGS (1)
  1. EXTRA STRENGTH TYLENOL [Suspect]
     Indication: DRUG USE FOR UNKNOWN INDICATION
     Dosage: SLIGHTLY LESS THAN 50G
     Dates: start: 19920101, end: 19920101

REACTIONS (3)
  - INTENTIONAL OVERDOSE [None]
  - PALLOR [None]
  - VOMITING [None]
